FAERS Safety Report 5766435-X (Version None)
Quarter: 2008Q2

REPORT INFORMATION
  Report Type: 
  Country: None (occurrence: None)
  Receive Date: 20080611
  Receipt Date: 20080515
  Transmission Date: 20081010
  Serious: No
  Sender: FDA-Public Use
  Company Number: US-BOEHRINGER INGELHEIM GMBH, GERMANY-2008-BP-07628BP

PATIENT
  Sex: Male

DRUGS (5)
  1. SPIRIVA [Suspect]
     Indication: DYSPNOEA
     Route: 055
     Dates: start: 20080315
  2. SPIRIVA [Suspect]
     Route: 048
     Dates: start: 20080514, end: 20080514
  3. SINGULAIR [Concomitant]
     Indication: HYPERSENSITIVITY
  4. CLARITIN [Concomitant]
     Indication: HYPERSENSITIVITY
  5. PERCOCET [Concomitant]
     Indication: INTERVERTEBRAL DISC PROTRUSION

REACTIONS (3)
  - DIARRHOEA [None]
  - FLATULENCE [None]
  - INCORRECT ROUTE OF DRUG ADMINISTRATION [None]
